FAERS Safety Report 9344611 (Version 1)
Quarter: 2013Q2

REPORT INFORMATION
  Report Type: Spontaneous
  Country: CH (occurrence: CH)
  Receive Date: 20130612
  Receipt Date: 20130612
  Transmission Date: 20140414
  Serious: Yes (Hospitalization)
  Sender: FDA-Public Use
  Company Number: PHHY2013CH057687

PATIENT
  Age: 88 Year
  Sex: Female

DRUGS (9)
  1. GALVUS [Suspect]
     Dosage: 50 MG, UNK
     Route: 048
     Dates: end: 20130416
  2. METFORMIN [Suspect]
     Dosage: 500 MG, UNK
     Dates: end: 20130416
  3. MICARDIS PLUS [Suspect]
     Dosage: 80 MG, UNK
     Route: 048
     Dates: end: 20130416
  4. TORASEM [Suspect]
     Dosage: 5 MG, UNK
     Dates: end: 20130416
  5. DIAMICRON [Suspect]
     Route: 048
     Dates: end: 20130416
  6. LIPANTHYL [Suspect]
     Dosage: 200 MG, UNK
     Route: 048
     Dates: end: 20130416
  7. HALCION [Concomitant]
     Dosage: 0.25 MG, UNK
     Route: 048
  8. DILATREND [Concomitant]
     Dosage: 12.5 MG, UNK
     Route: 048
  9. DISTRANEURIN [Concomitant]
     Dosage: 300 MG, UNK
     Route: 048

REACTIONS (4)
  - Hepatocellular injury [Recovering/Resolving]
  - Cholecystitis [Recovering/Resolving]
  - Renal failure acute [Recovering/Resolving]
  - Hepatic enzyme increased [Recovering/Resolving]
